FAERS Safety Report 25964528 (Version 1)
Quarter: 2025Q4

REPORT INFORMATION
  Report Type: Spontaneous
  Country: US (occurrence: US)
  Receive Date: 20251027
  Receipt Date: 20251027
  Transmission Date: 20260118
  Serious: No
  Sender: ABBVIE
  Company Number: US-ABBVIE-6520758

PATIENT
  Age: 57 Year
  Sex: Female

DRUGS (1)
  1. SKYRIZI [Suspect]
     Active Substance: RISANKIZUMAB-RZAA
     Indication: Crohn^s disease
     Dosage: TIME INTERVAL: TOTAL: INTRAVENOUS INFUSION
     Route: 042
     Dates: start: 20251024, end: 20251024

REACTIONS (1)
  - Autoscopy [Recovered/Resolved]

NARRATIVE: CASE EVENT DATE: 20251024
